FAERS Safety Report 14069434 (Version 1)
Quarter: 2017Q4

REPORT INFORMATION
  Report Type: Spontaneous
  Country: FR (occurrence: FR)
  Receive Date: 20171010
  Receipt Date: 20171010
  Transmission Date: 20180321
  Serious: Yes (Hospitalization)
  Sender: FDA-Public Use
  Company Number: FR-ASTRAZENECA-2017SF02701

PATIENT
  Age: 21357 Day
  Sex: Female

DRUGS (10)
  1. NALMEFENE [Concomitant]
     Active Substance: NALMEFENE
     Dosage: USUAL TREATMENT, AS NEEDED
  2. SERESTA [Concomitant]
     Active Substance: OXAZEPAM
     Dosage: USUAL TREATMENT, 50 MG MORNING, 25 MG AT NOON, 25 MG EVENING AND 50 MG AT BEDTIME
  3. VALSARTAN. [Concomitant]
     Active Substance: VALSARTAN
     Dosage: USUAL TREATMENT
  4. NISISCO [Concomitant]
     Active Substance: HYDROCHLOROTHIAZIDE\VALSARTAN
     Dosage: 160 / 12.5 MG, USUAL TREATMENT
  5. THERALENE [Concomitant]
     Active Substance: TRIMEPRAZINE
     Dosage: USUAL TREATMENT, 20 DROPS EVENING
  6. ESOMEPRAZOLE [Concomitant]
     Active Substance: ESOMEPRAZOLE
     Dosage: USUAL TREATMENT
  7. VENTOLINE [Concomitant]
     Active Substance: ALBUTEROL
     Dosage: USUAL TREATMENT
  8. NOCTAMIDE [Concomitant]
     Active Substance: LORMETAZEPAM
     Dosage: USUAL TREATMENT, ONE DOSAGE FORM EVENING
  9. XEROQUEL [Suspect]
     Active Substance: QUETIAPINE FUMARATE
     Indication: DEPRESSION
     Route: 048
     Dates: end: 20170906
  10. ZOLOFT [Concomitant]
     Active Substance: SERTRALINE HYDROCHLORIDE
     Dosage: USUAL TREATMENT, 100 MG MORNING AND 50 MG EVENING

REACTIONS (2)
  - Deep vein thrombosis [Recovering/Resolving]
  - Pulmonary embolism [Recovering/Resolving]

NARRATIVE: CASE EVENT DATE: 20170906
